FAERS Safety Report 9695698 (Version 2)
Quarter: 2014Q1

REPORT INFORMATION
  Report Type: Spontaneous
  Country: US (occurrence: US)
  Receive Date: 20131119
  Receipt Date: 20140212
  Transmission Date: 20141002
  Serious: Yes (Hospitalization)
  Sender: FDA-Public Use
  Company Number: US-B.I. PHARMACEUTICALS,INC./RIDGEFIELD-2013-BI-37380BP

PATIENT
  Age: 58 Year
  Sex: Male
  Weight: 132 kg

DRUGS (4)
  1. PRADAXA [Suspect]
     Indication: ANTICOAGULANT THERAPY
     Dates: end: 2013
  2. PRADAXA [Suspect]
     Dates: start: 201303
  3. ASA 81MG [Concomitant]
     Indication: ANTICOAGULANT THERAPY
     Dates: start: 201303
  4. PLAVIX [Concomitant]
     Indication: ANTICOAGULANT THERAPY
     Dates: start: 20131030

REACTIONS (1)
  - Stent placement [Recovered/Resolved]
